FAERS Safety Report 18790855 (Version 2)
Quarter: 2021Q1

REPORT INFORMATION
  Report Type: Spontaneous
  Country: US (occurrence: US)
  Receive Date: 20210126
  Receipt Date: 20210208
  Transmission Date: 20210419
  Serious: No
  Sender: FDA-Public Use
  Company Number: US-ALKERMES INC.-ALK-2021-000355

PATIENT
  Age: 37 Year
  Sex: Female
  Weight: 99.77 kg

DRUGS (7)
  1. ARISTADA [Suspect]
     Active Substance: ARIPIPRAZOLE LAUROXIL
     Dosage: 1064 MILLIGRAM, QMO
     Route: 030
     Dates: start: 20200602, end: 20200606
  2. ARISTADA [Suspect]
     Active Substance: ARIPIPRAZOLE LAUROXIL
     Dosage: 1064 MILLIGRAM, QMO
     Route: 030
     Dates: start: 20200205, end: 20200205
  3. BENZOTROPINE [Concomitant]
     Active Substance: BENZTROPINE
     Indication: PRODUCT USED FOR UNKNOWN INDICATION
     Dosage: UNK, BID
     Route: 065
  4. ARISTADA [Suspect]
     Active Substance: ARIPIPRAZOLE LAUROXIL
     Indication: SCHIZOPHRENIA
     Dosage: 882 MILLIGRAM, QMO
     Route: 030
     Dates: start: 20201209
  5. ARISTADA [Suspect]
     Active Substance: ARIPIPRAZOLE LAUROXIL
     Dosage: 1064 MILLIGRAM, QMO
     Route: 030
     Dates: start: 20200331, end: 20200331
  6. ARISTADA [Suspect]
     Active Substance: ARIPIPRAZOLE LAUROXIL
     Dosage: 1064 MILLIGRAM, QMO
     Route: 030
     Dates: start: 20201002, end: 20201002
  7. ARISTADA [Suspect]
     Active Substance: ARIPIPRAZOLE LAUROXIL
     Dosage: 1064 MILLIGRAM, QMO
     Route: 030
     Dates: start: 20200804, end: 20200804

REACTIONS (8)
  - Soliloquy [Recovered/Resolved]
  - Fear [Recovered/Resolved]
  - Tachyphrenia [Recovered/Resolved]
  - Adverse drug reaction [Unknown]
  - Palpitations [Unknown]
  - Thinking abnormal [Unknown]
  - Facial spasm [Unknown]
  - Terminal insomnia [Recovered/Resolved]

NARRATIVE: CASE EVENT DATE: 20201223
